FAERS Safety Report 4766454-6 (Version None)
Quarter: 2005Q3

REPORT INFORMATION
  Report Type: 
  Country: None (occurrence: None)
  Receive Date: 20050909
  Receipt Date: 20050831
  Transmission Date: 20060218
  Serious: Yes (Other)
  Sender: FDA-Public Use
  Company Number: 2005122732

PATIENT
  Age: 27 Year
  Sex: Male

DRUGS (2)
  1. MEDROL [Suspect]
     Indication: IMMUNE SYSTEM DISORDER
     Dosage: ORAL
     Route: 048
  2. SOLU-MEDROL [Suspect]
     Indication: IMMUNE SYSTEM DISORDER
     Dosage: INTRAVENOUS
     Route: 042

REACTIONS (1)
  - PANCYTOPENIA [None]
